FAERS Safety Report 19243575 (Version 2)
Quarter: 2021Q2

REPORT INFORMATION
  Report Type: Spontaneous
  Country: US (occurrence: US)
  Receive Date: 20210511
  Receipt Date: 20210610
  Transmission Date: 20210717
  Serious: Yes (Death, Other)
  Sender: FDA-Public Use
  Company Number: US-AMGEN-USASP2021069642

PATIENT
  Sex: Female

DRUGS (4)
  1. TRASTUZUMAB. [Suspect]
     Active Substance: TRASTUZUMAB
     Indication: ADENOCARCINOMA PANCREAS
     Dosage: UNK
     Route: 065
     Dates: start: 201906
  2. GEMCITABINE. [Concomitant]
     Active Substance: GEMCITABINE
     Indication: ADENOCARCINOMA PANCREAS
     Dosage: UNK
     Dates: start: 201906
  3. TRASTUZUMAB. [Suspect]
     Active Substance: TRASTUZUMAB
     Dosage: UNK
     Route: 037
     Dates: start: 201906
  4. PACLITAXEL. [Concomitant]
     Active Substance: PACLITAXEL
     Indication: ADENOCARCINOMA PANCREAS
     Dosage: UNK
     Dates: start: 201906

REACTIONS (8)
  - Hospice care [Unknown]
  - Metastases to central nervous system [Not Recovered/Not Resolved]
  - K-ras gene mutation [Unknown]
  - Death [Fatal]
  - Central nervous system lesion [Unknown]
  - TP53 gene mutation [Unknown]
  - Metastases to meninges [Unknown]
  - Off label use [Unknown]

NARRATIVE: CASE EVENT DATE: 2019
